FAERS Safety Report 7767768-8 (Version None)
Quarter: 2011Q3

REPORT INFORMATION
  Report Type: 
  Country: None (occurrence: None)
  Receive Date: 20110922
  Receipt Date: 20100913
  Transmission Date: 20111222
  Serious: No
  Sender: FDA-Public Use
  Company Number: US-ASTRAZENECA-2010SE42797

PATIENT
  Age: 25 Year
  Sex: Female
  Weight: 59 kg

DRUGS (2)
  1. SEROQUEL [Suspect]
     Indication: BIPOLAR DISORDER
     Route: 048
     Dates: start: 20050101, end: 20100906
  2. LEXAPRO [Concomitant]

REACTIONS (5)
  - INSOMNIA [None]
  - EMOTIONAL DISORDER [None]
  - CRYING [None]
  - DRUG DOSE OMISSION [None]
  - APHAGIA [None]
